FAERS Safety Report 10178655 (Version 2)
Quarter: 2014Q2

REPORT INFORMATION
  Report Type: Spontaneous
  Country: US (occurrence: US)
  Receive Date: 20140519
  Receipt Date: 20140626
  Transmission Date: 20141212
  Serious: Yes (Hospitalization, Disabling)
  Sender: FDA-Public Use
  Company Number: US-BAYER-2014-073196

PATIENT
  Age: 25 Year
  Sex: Female
  Weight: 73.92 kg

DRUGS (6)
  1. MIRENA [Suspect]
     Indication: CONTRACEPTION
     Dosage: 20 MCG/24HR, CONT
     Route: 015
     Dates: start: 20110830, end: 20120426
  2. FERROUS SULFATE [Concomitant]
  3. MORPHINE [Concomitant]
  4. BENADRYL [Concomitant]
  5. ZOFRAN [Concomitant]
  6. VICODIN [Concomitant]

REACTIONS (9)
  - Uterine perforation [None]
  - Ectopic pregnancy with contraceptive device [None]
  - Ruptured ectopic pregnancy [None]
  - Drug ineffective [None]
  - Injury [None]
  - Pain [None]
  - Emotional distress [None]
  - General physical health deterioration [None]
  - Anhedonia [None]
